FAERS Safety Report 5875126-6 (Version None)
Quarter: 2008Q3

REPORT INFORMATION
  Report Type: 
  Country: None (occurrence: None)
  Receive Date: 20080909
  Receipt Date: 20080905
  Transmission Date: 20090109
  Serious: Yes (Hospitalization)
  Sender: FDA-Public Use
  Company Number: B0534562A

PATIENT
  Age: 75 Year
  Sex: Female

DRUGS (7)
  1. IMIGRAN [Suspect]
     Indication: MIGRAINE
     Dosage: 3MG PER DAY
     Route: 058
     Dates: start: 20080717
  2. OLMETEC [Concomitant]
     Indication: HYPERTENSION
     Dosage: 20MG PER DAY
     Route: 048
  3. NORVASC [Concomitant]
     Indication: HYPERTENSION
     Dosage: 5MG PER DAY
     Route: 048
  4. CETAPRIL [Concomitant]
     Indication: HYPERTENSION
     Dosage: 50MG PER DAY
     Route: 048
  5. BENET [Concomitant]
     Indication: OSTEOPOROSIS
     Dosage: 2.5MG PER DAY
     Route: 048
  6. NEUROTROPIN [Concomitant]
     Indication: OSTEOPOROSIS
     Dosage: 1TAB PER DAY
     Route: 048
  7. HALCION [Concomitant]
     Indication: INSOMNIA
     Dosage: .25MG PER DAY
     Route: 048

REACTIONS (6)
  - ABNORMAL BEHAVIOUR [None]
  - AMNESIA [None]
  - DELIRIUM [None]
  - HEADACHE [None]
  - MIGRAINE [None]
  - SPEECH DISORDER [None]
